FAERS Safety Report 14011809 (Version 1)
Quarter: 2017Q3

REPORT INFORMATION
  Report Type: Spontaneous
  Country: US (occurrence: None)
  Receive Date: 20170926
  Receipt Date: 20170926
  Transmission Date: 20171128
  Serious: Yes (Death, Life-Threatening, Hospitalization)
  Sender: FDA-Public Use
  Company Number: None

PATIENT
  Age: 47 Year
  Sex: Male
  Weight: 96.9 kg

DRUGS (5)
  1. VENOFER [Suspect]
     Active Substance: IRON SUCROSE
     Indication: IRON DEFICIENCY
     Dosage: FREQUENCY - EVERY TREATMENT
     Route: 042
     Dates: start: 20170809, end: 20170906
  2. HEPARIN [Concomitant]
     Active Substance: HEPARIN SODIUM
  3. MIRCERA [Suspect]
     Active Substance: METHOXY POLYETHYLENE GLYCOL-EPOETIN BETA
     Indication: ANAEMIA
     Route: 042
     Dates: start: 20170906, end: 20170906
  4. MIRCERA [Suspect]
     Active Substance: METHOXY POLYETHYLENE GLYCOL-EPOETIN BETA
     Indication: RENAL DISORDER
     Route: 042
     Dates: start: 20170906, end: 20170906
  5. HECTOROL [Suspect]
     Active Substance: DOXERCALCIFEROL
     Indication: HYPERPARATHYROIDISM SECONDARY
     Route: 042
     Dates: start: 20170809, end: 20170906

REACTIONS (5)
  - Unresponsive to stimuli [None]
  - Hyperhidrosis [None]
  - Dyspnoea [None]
  - Resuscitation [None]
  - Pallor [None]

NARRATIVE: CASE EVENT DATE: 20170906
